FAERS Safety Report 5187942-7 (Version None)
Quarter: 2006Q4

REPORT INFORMATION
  Report Type: 
  Country: None (occurrence: None)
  Receive Date: 20061221
  Receipt Date: 20061129
  Transmission Date: 20070319
  Serious: Yes (Other)
  Sender: FDA-Public Use
  Company Number: PHBS2006JP18687

PATIENT
  Age: 11 Year
  Sex: Male

DRUGS (5)
  1. SIMULECT [Suspect]
     Indication: FOCAL GLOMERULOSCLEROSIS
     Route: 042
  2. TACROLIMUS [Concomitant]
     Route: 065
  3. CYCLOPHOSPHAMIDE [Concomitant]
     Route: 065
  4. PREDNISOLONE [Concomitant]
  5. MYCOPHENOLATE MOFETIL [Concomitant]
     Route: 065

REACTIONS (3)
  - CYTOMEGALOVIRUS INFECTION [None]
  - LAPAROTOMY [None]
  - MECHANICAL ILEUS [None]
